FAERS Safety Report 8440372-4 (Version None)
Quarter: 2012Q2

REPORT INFORMATION
  Report Type: 
  Country: None (occurrence: None)
  Receive Date: 20120615
  Receipt Date: 20120608
  Transmission Date: 20120825
  Serious: Yes (Other)
  Sender: FDA-Public Use
  Company Number: CA-ROCHE-GNE320314

PATIENT
  Sex: Female

DRUGS (3)
  1. XOLAIR [Suspect]
     Dates: start: 20120608
  2. XOLAIR [Suspect]
     Indication: ASTHMA
     Dosage: 375 MG, Q2W
     Route: 058
     Dates: start: 20080528
  3. XOLAIR [Suspect]
     Dates: start: 20110610

REACTIONS (14)
  - COUGH [None]
  - PHARYNGITIS [None]
  - RHINORRHOEA [None]
  - ANAPHYLACTIC SHOCK [None]
  - RESPIRATORY TRACT CONGESTION [None]
  - HERPES SIMPLEX [None]
  - INFLUENZA [None]
  - NASOPHARYNGITIS [None]
  - SPUTUM DISCOLOURED [None]
  - DIZZINESS [None]
  - FATIGUE [None]
  - BRONCHITIS [None]
  - PAIN IN EXTREMITY [None]
  - HYPERSENSITIVITY [None]
